FAERS Safety Report 5690610-6 (Version None)
Quarter: 2008Q1

REPORT INFORMATION
  Report Type: 
  Country: None (occurrence: None)
  Receive Date: 20080331
  Receipt Date: 20080331
  Transmission Date: 20080703
  Serious: No
  Sender: FDA-Public Use
  Company Number: None

PATIENT
  Age: 5 Year
  Sex: Female
  Weight: 19.0511 kg

DRUGS (2)
  1. MIRALAX [Suspect]
     Indication: CONSTIPATION
     Dosage: 9G-17G DAILY PO 3+ YEARS
     Route: 048
  2. SINGULAIR [Concomitant]

REACTIONS (3)
  - AFFECTIVE DISORDER [None]
  - ANXIETY [None]
  - MOOD SWINGS [None]
